FAERS Safety Report 16569834 (Version 1)
Quarter: 2019Q3

REPORT INFORMATION
  Report Type: Spontaneous
  Country: US (occurrence: US)
  Receive Date: 20190531
  Receipt Date: 20190531
  Transmission Date: 20191004
  Serious: No
  Sender: FDA-Public Use
  Company Number: None

PATIENT
  Age: 32 Year
  Sex: Male

DRUGS (1)
  1. MAVYRET [Suspect]
     Active Substance: GLECAPREVIR\PIBRENTASVIR
     Route: 048
     Dates: start: 201905

REACTIONS (6)
  - Pharyngeal swelling [None]
  - Food allergy [None]
  - Swollen tongue [None]
  - Condition aggravated [None]
  - Depression [None]
  - Lymphadenopathy [None]

NARRATIVE: CASE EVENT DATE: 20190531
